FAERS Safety Report 7331953-X (Version None)
Quarter: 2011Q1

REPORT INFORMATION
  Report Type: 
  Country: None (occurrence: None)
  Receive Date: 20110304
  Receipt Date: 20110223
  Transmission Date: 20110831
  Serious: Yes (Hospitalization)
  Sender: FDA-Public Use
  Company Number: US-ELI_LILLY_AND_COMPANY-US201103000350

PATIENT
  Age: 67 Year
  Sex: Male

DRUGS (9)
  1. PRASUGREL HYDROCHLORIDE [Suspect]
     Indication: ACUTE CORONARY SYNDROME
     Dosage: 60 MG, ONCE
     Dates: start: 20100922, end: 20100922
  2. PRASUGREL HYDROCHLORIDE [Suspect]
     Dosage: 10 MG, UNK
     Dates: start: 20100923, end: 20110112
  3. PRASUGREL HYDROCHLORIDE [Suspect]
     Dosage: 10 D/F, UNK
     Dates: start: 20110115
  4. TAMSULOSIN HYDROCHLORIDE [Concomitant]
     Indication: BENIGN PROSTATIC HYPERPLASIA
     Dosage: 0.4 MG, DAILY (1/D)
     Route: 048
  5. ASPIRIN [Concomitant]
     Dosage: 325 MG, UNK
     Dates: end: 20110112
  6. LISINOPRIL [Concomitant]
     Indication: CORONARY ARTERY DISEASE
     Dosage: 20 MG, DAILY (1/D)
     Route: 048
  7. ROSUVASTATIN [Concomitant]
     Indication: CORONARY ARTERY DISEASE
     Dosage: 20 MG, DAILY (1/D)
     Route: 048
     Dates: start: 20080101
  8. ASPIRIN [Concomitant]
     Dosage: 325 MG, UNK
     Dates: start: 20110115, end: 20110120
  9. CARVEDILOL [Concomitant]
     Indication: CORONARY ARTERY DISEASE
     Dosage: 3.125 MG, 2/D
     Route: 048
     Dates: start: 20080101

REACTIONS (1)
  - BLADDER CANCER [None]
